FAERS Safety Report 5017525-0 (Version None)
Quarter: 2006Q2

REPORT INFORMATION
  Report Type: 
  Country: None (occurrence: None)
  Receive Date: 20060601
  Receipt Date: 20060601
  Transmission Date: 20061013
  Serious: Yes (Hospitalization)
  Sender: FDA-Public Use
  Company Number: None

PATIENT
  Age: 22 Year
  Sex: Female
  Weight: 69.5 kg

DRUGS (1)
  1. HALDOL [Suspect]
     Indication: AGITATION
     Dosage: 10 MG IM
     Route: 030
     Dates: start: 20060226

REACTIONS (1)
  - DYSTONIA [None]
